FAERS Safety Report 15015142 (Version 1)
Quarter: 2018Q2

REPORT INFORMATION
  Report Type: Spontaneous
  Country: US (occurrence: US)
  Receive Date: 20180522
  Receipt Date: 20180522
  Transmission Date: 20180711
  Serious: Yes (Death)
  Sender: FDA-Public Use
  Company Number: None

PATIENT
  Age: 20 Year
  Sex: Male
  Weight: 213.9 kg

DRUGS (6)
  1. CYTARABINE. [Suspect]
     Active Substance: CYTARABINE
     Dates: end: 20180420
  2. VINCRISTINE SULFATE. [Suspect]
     Active Substance: VINCRISTINE SULFATE
     Dates: end: 20180511
  3. PREDNISONE. [Suspect]
     Active Substance: PREDNISONE
     Dates: end: 20180515
  4. DAUNORUBICIN [Suspect]
     Active Substance: DAUNORUBICIN
     Dates: end: 20180511
  5. ONCASPAR [Suspect]
     Active Substance: PEGASPARGASE
     Dosage: ?          OTHER DOSE:5000 UNIT;?
     Dates: end: 20180424
  6. METHOTREXATE. [Suspect]
     Active Substance: METHOTREXATE
     Dates: end: 20180427

REACTIONS (7)
  - Ventricular tachycardia [None]
  - Cardiac arrest [None]
  - Hepatic failure [None]
  - Pseudomonas test positive [None]
  - Septic shock [None]
  - Pulse absent [None]
  - Ventricular fibrillation [None]

NARRATIVE: CASE EVENT DATE: 20180517
